FAERS Safety Report 8430462 (Version 2)
Quarter: 2012Q4

REPORT INFORMATION
  Report Type: 
  Country: ES (occurrence: ES)
  Receive Date: 20120228
  Receipt Date: 20120829
  Transmission Date: 20130627
  Serious: Yes (Other)
  Sender: FDA-Public Use
  Company Number: ES-ELI_LILLY_AND_COMPANY-ES201202004388

PATIENT
  Age: 10 Year
  Sex: Male

DRUGS (6)
  1. STRATTERA [Suspect]
     Dosage: 50 mg, qd
  2. STRATTERA [Suspect]
     Dosage: 25mg, qd
     Dates: end: 201206
  3. PIMOZIDE [Concomitant]
     Dosage: 8 mg, qd
  4. PIMOZIDE [Concomitant]
     Dosage: 4mg, qd
  5. SERTRALINE [Concomitant]
     Dosage: Unk, unk
  6. SERTRALINE [Concomitant]
     Dosage: Unk, unk

REACTIONS (1)
  - Electrocardiogram QT prolonged [Recovering/Resolving]
